FAERS Safety Report 4731866-3 (Version None)
Quarter: 2005Q3

REPORT INFORMATION
  Report Type: 
  Country: None (occurrence: None)
  Receive Date: 20050725
  Receipt Date: 20041201
  Transmission Date: 20060218
  Serious: Yes (Life-Threatening, Hospitalization, Disabling)
  Sender: FDA-Public Use
  Company Number: WAES 0412USA00224

PATIENT
  Age: 75 Year
  Sex: Female
  Weight: 64.4108 kg

DRUGS (7)
  1. VIOXX [Suspect]
     Indication: OSTEOARTHRITIS
     Dosage: 25 MG/DAILY/PO
     Route: 048
     Dates: start: 20020201, end: 20021109
  2. ACCUPRIL [Concomitant]
  3. DIGITEK [Concomitant]
  4. FOSAMAX [Concomitant]
  5. NORVASC [Concomitant]
  6. VASOTEC RPD [Concomitant]
  7. LACTOSE [Concomitant]

REACTIONS (2)
  - CLOSTRIDIUM COLITIS [None]
  - RENAL FAILURE ACUTE [None]
